FAERS Safety Report 12600175 (Version 2)
Quarter: 2016Q3

REPORT INFORMATION
  Report Type: Report from Study
  Country: RO (occurrence: RO)
  Receive Date: 20160727
  Receipt Date: 20160915
  Transmission Date: 20161109
  Serious: Yes (Hospitalization)
  Sender: FDA-Public Use
  Company Number: RO-KADMON PHARMACEUTICALS, LLC-KAD201607-002794

PATIENT
  Age: 65 Year
  Sex: Female

DRUGS (11)
  1. EXVIERA [Suspect]
     Active Substance: DASABUVIR
     Indication: HEPATIC CIRRHOSIS
  2. MIOFILIN [Concomitant]
     Dosage: INFUSION
     Dates: start: 20160902
  3. LEVEMIR [Concomitant]
     Active Substance: INSULIN DETEMIR
     Indication: DIABETES MELLITUS
     Dates: start: 2004
  4. RIBAVIRIN. [Suspect]
     Active Substance: RIBAVIRIN
     Indication: HEPATIC CIRRHOSIS
     Dosage: FILM-COATED TABLET
     Route: 048
     Dates: start: 20160620, end: 20160712
  5. GLUCOSE [Concomitant]
     Active Substance: DEXTROSE
  6. VIEKIRAX [Suspect]
     Active Substance: OMBITASVIR\PARITAPREVIR\RITONAVIR
     Indication: HEPATIC CIRRHOSIS
  7. EXVIERA [Suspect]
     Active Substance: DASABUVIR
     Indication: HEPATITIS C
     Route: 048
     Dates: start: 20160620
  8. HUMULIN R [Concomitant]
     Active Substance: INSULIN HUMAN
     Indication: DIABETES MELLITUS
     Dates: start: 2004
  9. RIBAVIRIN. [Suspect]
     Active Substance: RIBAVIRIN
     Indication: HEPATITIS C
  10. VIEKIRAX [Suspect]
     Active Substance: OMBITASVIR\PARITAPREVIR\RITONAVIR
     Indication: HEPATITIS C
     Route: 048
     Dates: start: 20160620
  11. RAMIPRIL 10 MG [Concomitant]
     Indication: HYPERTENSION
     Route: 048
     Dates: start: 2006

REACTIONS (13)
  - Melaena [Unknown]
  - Posture abnormal [Unknown]
  - Varices oesophageal [Unknown]
  - Nausea [Unknown]
  - Asthenia [Unknown]
  - Haematemesis [Unknown]
  - Blood glucose increased [Unknown]
  - Restlessness [Unknown]
  - Upper gastrointestinal haemorrhage [Unknown]
  - Hypotension [Recovered/Resolved]
  - Haemoglobin decreased [Unknown]
  - Tremor [Unknown]
  - Syncope [Recovered/Resolved]

NARRATIVE: CASE EVENT DATE: 20160711
